FAERS Safety Report 23469926 (Version 3)
Quarter: 2024Q2

REPORT INFORMATION
  Report Type: Spontaneous
  Country: US (occurrence: US)
  Receive Date: 20240202
  Receipt Date: 20240502
  Transmission Date: 20240716
  Serious: No
  Sender: FDA-Public Use
  Company Number: US-GSK-US2024AMR010921

PATIENT
  Sex: Male

DRUGS (1)
  1. ALBUTEROL SULFATE [Suspect]
     Active Substance: ALBUTEROL SULFATE
     Indication: Asthma exercise induced
     Dosage: 90 MCG, 18G/200
     Route: 055

REACTIONS (3)
  - Wrong technique in product usage process [Unknown]
  - Expired device used [Unknown]
  - Product use in unapproved indication [Unknown]
